FAERS Safety Report 14036102 (Version 1)
Quarter: 2017Q4

REPORT INFORMATION
  Report Type: Spontaneous
  Country: US (occurrence: US)
  Receive Date: 20171003
  Receipt Date: 20171003
  Transmission Date: 20180321
  Serious: No
  Sender: FDA-Public Use
  Company Number: US-ROCHE-1966115

PATIENT
  Age: 41 Year
  Sex: Female

DRUGS (5)
  1. TYLENOL [Concomitant]
     Active Substance: ACETAMINOPHEN
     Dosage: NO PRE MEDICATION
     Route: 065
     Dates: start: 20170719
  2. OCREVUS [Suspect]
     Active Substance: OCRELIZUMAB
     Indication: MULTIPLE SCLEROSIS
     Dosage: NO
     Route: 041
     Dates: start: 20170719
  3. BENADRYL [Concomitant]
     Active Substance: DIPHENHYDRAMINE HYDROCHLORIDE
     Indication: URTICARIA
     Dosage: PRE MEDICATION
     Route: 042
     Dates: start: 20170719
  4. SOLU-MEDROL [Concomitant]
     Active Substance: METHYLPREDNISOLONE SODIUM SUCCINATE
     Indication: URTICARIA
     Dosage: NO PRE MEDICATION
     Route: 042
     Dates: start: 20170719
  5. PEPCID (UNITED STATES) [Concomitant]
     Indication: URTICARIA
     Dosage: NO
     Route: 065
     Dates: start: 20170719

REACTIONS (6)
  - Infusion related reaction [Not Recovered/Not Resolved]
  - Swollen tongue [Not Recovered/Not Resolved]
  - Flushing [Not Recovered/Not Resolved]
  - Drug ineffective [Unknown]
  - Urticaria [Not Recovered/Not Resolved]
  - Throat irritation [Not Recovered/Not Resolved]

NARRATIVE: CASE EVENT DATE: 20170719
